FAERS Safety Report 10181408 (Version 2)
Quarter: 2014Q2

REPORT INFORMATION
  Report Type: Spontaneous
  Country: US (occurrence: US)
  Receive Date: 20140519
  Receipt Date: 20140606
  Transmission Date: 20141212
  Serious: No
  Sender: FDA-Public Use
  Company Number: US-TEVA-482795USA

PATIENT
  Sex: Female

DRUGS (3)
  1. PLAN B ONE-STEP [Suspect]
     Indication: POST COITAL CONTRACEPTION
     Dosage: 1.5 MILLIGRAM DAILY;
     Route: 048
     Dates: start: 20140428, end: 20140428
  2. EFFEXOR [Concomitant]
     Indication: DEPRESSION
  3. ABILIFY [Concomitant]
     Indication: DEPRESSION

REACTIONS (1)
  - Menstruation irregular [Recovered/Resolved]
